FAERS Safety Report 24707086 (Version 5)
Quarter: 2025Q1

REPORT INFORMATION
  Report Type: Report from Study
  Country: DE (occurrence: DE)
  Receive Date: 20241206
  Receipt Date: 20250313
  Transmission Date: 20250408
  Serious: Yes (Other)
  Sender: MERCK SHARP & DOHME LLC
  Company Number: DE-009507513-2410DEU006945

PATIENT
  Age: 66 Year
  Sex: Female

DRUGS (14)
  1. WINREVAIR [Suspect]
     Active Substance: SOTATERCEPT-CSRK
     Indication: Pulmonary hypertension
     Dates: start: 20241023
  2. WINREVAIR [Suspect]
     Active Substance: SOTATERCEPT-CSRK
     Dates: start: 20241002
  3. WINREVAIR [Suspect]
     Active Substance: SOTATERCEPT-CSRK
     Dates: start: 20241113
  4. WINREVAIR [Suspect]
     Active Substance: SOTATERCEPT-CSRK
  5. WINREVAIR [Suspect]
     Active Substance: SOTATERCEPT-CSRK
  6. INFLIXIMAB [Concomitant]
     Active Substance: INFLIXIMAB
     Dosage: DOSE DESCRIPTION : UNK, EVERY 8 WEEKS
  7. SELEXIPAG [Concomitant]
     Active Substance: SELEXIPAG
  8. MACITENTAN [Concomitant]
     Active Substance: MACITENTAN
  9. CORTISONE [Concomitant]
     Active Substance: CORTISONE
  10. CORTISONE [Concomitant]
     Active Substance: CORTISONE
  11. BISOPROLOL [Concomitant]
     Active Substance: BISOPROLOL
  12. BISOPROLOL [Concomitant]
     Active Substance: BISOPROLOL
  13. IVABRADINE [Concomitant]
     Active Substance: IVABRADINE
  14. XARELTO [Concomitant]
     Active Substance: RIVAROXABAN

REACTIONS (12)
  - Pneumonia [Recovered/Resolved]
  - Dyspepsia [Not Recovered/Not Resolved]
  - Infection [Unknown]
  - Influenza like illness [Recovered/Resolved]
  - Infection [Unknown]
  - Influenza like illness [Unknown]
  - Diarrhoea [Unknown]
  - Gout [Unknown]
  - Headache [Recovered/Resolved]
  - Headache [Recovered/Resolved]
  - Epistaxis [Recovered/Resolved]
  - Nasopharyngitis [Recovered/Resolved]

NARRATIVE: CASE EVENT DATE: 20241005
